FAERS Safety Report 8378862-5 (Version None)
Quarter: 2012Q2

REPORT INFORMATION
  Report Type: 
  Country: None (occurrence: None)
  Receive Date: 20120523
  Receipt Date: 20120508
  Transmission Date: 20120825
  Serious: Yes (Disabling, Other)
  Sender: FDA-Public Use
  Company Number: EG-PAR PHARMACEUTICAL, INC-2012SCPR004384

PATIENT

DRUGS (1)
  1. HYDROXYUREA [Suspect]
     Indication: CHRONIC MYELOID LEUKAEMIA
     Dosage: 1-1.5 G / DAY
     Route: 048

REACTIONS (11)
  - HYPERKERATOSIS PALMARIS AND PLANTARIS [None]
  - NAIL DYSTROPHY [None]
  - SKIN ATROPHY [None]
  - SKIN ULCER [None]
  - TONGUE PIGMENTATION [None]
  - XEROSIS [None]
  - SKIN HYPERPIGMENTATION [None]
  - DERMATOMYOSITIS [None]
  - NAIL PIGMENTATION [None]
  - ACTINIC KERATOSIS [None]
  - ICHTHYOSIS ACQUIRED [None]
